FAERS Safety Report 6692401-6 (Version None)
Quarter: 2010Q2

REPORT INFORMATION
  Report Type: 
  Country: None (occurrence: None)
  Receive Date: 20100413
  Receipt Date: 20100401
  Transmission Date: 20101027
  Serious: Yes (Death)
  Sender: FDA-Public Use
  Company Number: THYM-1001241

PATIENT
  Age: 62 Year
  Sex: Male
  Weight: 71 kg

DRUGS (7)
  1. THYMOGLOBULIN [Suspect]
     Indication: BONE MARROW CONDITIONING REGIMEN
     Dosage: 70 MG, QD, INTRAVENOUS
     Route: 042
     Dates: start: 20090328, end: 20090331
  2. FLUDARABINE PHOSPHATE [Concomitant]
  3. CYTARABINE [Concomitant]
  4. MELPHALAN HYDROCHLORIDE [Concomitant]
  5. METHYLPREDNISOLONE [Concomitant]
  6. TACROLIMUS [Concomitant]
  7. GANCICLOVIR [Concomitant]

REACTIONS (1)
  - FUNGAL SEPSIS [None]
